FAERS Safety Report 14339747 (Version 5)
Quarter: 2019Q2

REPORT INFORMATION
  Report Type: Report from Study
  Country: BR (occurrence: BR)
  Receive Date: 20171230
  Receipt Date: 20190509
  Transmission Date: 20190711
  Serious: Yes (Hospitalization, Other)
  Sender: FDA-Public Use
  Company Number: PHHY2017BR191628

PATIENT
  Sex: Female
  Weight: 84 kg

DRUGS (10)
  1. SPIRONOLACTONE. [Concomitant]
     Active Substance: SPIRONOLACTONE
     Indication: RENAL DISORDER
     Dosage: 1 DF, QOD (3 YEARS AGO)
     Route: 048
  2. SANDOSTATIN LAR DEPOT [Suspect]
     Active Substance: OCTREOTIDE ACETATE
     Indication: ACROMEGALY
     Dosage: 1 AMPOULE (20 MG), QMO (5 YEARS AGO)
     Route: 042
  3. ENTRESTO [Suspect]
     Active Substance: SACUBITRIL\VALSARTAN
     Indication: CARDIAC DISORDER
     Dosage: 2 DF, QD
     Route: 048
  4. SANDOSTATIN LAR DEPOT [Suspect]
     Active Substance: OCTREOTIDE ACETATE
     Indication: PITUITARY TUMOUR
     Dosage: 30 MG, QMO (EVERY 28 DAYS)
     Route: 030
     Dates: start: 20160701
  5. FUROSEMIDE. [Concomitant]
     Active Substance: FUROSEMIDE
     Indication: MICTURITION DISORDER
     Dosage: 1 DF, QD (3 YEARS AGO)
     Route: 048
  6. PURAN [Concomitant]
     Active Substance: LEVOTHYROXINE SODIUM
     Indication: HYPOTHYROIDISM
     Dosage: 1 DF, QD (3 YEARS AGO)
     Route: 048
  7. SANDOSTATIN LAR DEPOT [Suspect]
     Active Substance: OCTREOTIDE ACETATE
     Indication: NEOPLASM
     Dosage: 20 MG, QMO (EVERY 28 DAYS)
     Route: 030
     Dates: start: 20181128
  8. ENTRESTO [Suspect]
     Active Substance: SACUBITRIL\VALSARTAN
     Indication: DIABETES MELLITUS
     Dosage: 1 DF, BID (46/51) (3 YEARS AGO)
     Route: 048
  9. ALLOPURINOL. [Concomitant]
     Active Substance: ALLOPURINOL
     Indication: RENAL DISORDER
     Dosage: 1 DF, QOD (3 YEARS AGO)
     Route: 048
  10. SELOZOK [Concomitant]
     Active Substance: METOPROLOL SUCCINATE
     Indication: HYPERTENSION
     Dosage: 1 DF, BID (3 YEARS AGO)
     Route: 048

REACTIONS (25)
  - Back pain [Not Recovered/Not Resolved]
  - Weight decreased [Unknown]
  - Peritoneal carcinoma metastatic [Unknown]
  - Recurrent cancer [Unknown]
  - Lung disorder [Unknown]
  - Metastasis [Unknown]
  - Visual impairment [Not Recovered/Not Resolved]
  - Conjunctivitis [Recovered/Resolved]
  - Cardiac disorder [Recovering/Resolving]
  - Lung neoplasm malignant [Recovering/Resolving]
  - Abdominal neoplasm [Unknown]
  - Incorrect route of product administration [Unknown]
  - Colitis [Recovering/Resolving]
  - Diarrhoea haemorrhagic [Recovering/Resolving]
  - Diabetes mellitus [Recovering/Resolving]
  - Vomiting [Unknown]
  - Dyspnoea [Unknown]
  - Dehydration [Unknown]
  - Blood pressure decreased [Recovering/Resolving]
  - Ovarian cancer [Unknown]
  - Fatigue [Unknown]
  - Product use in unapproved indication [Unknown]
  - Malaise [Recovering/Resolving]
  - Spinal fracture [Not Recovered/Not Resolved]
  - Asthenia [Recovering/Resolving]
